FAERS Safety Report 16277973 (Version 2)
Quarter: 2019Q2

REPORT INFORMATION
  Report Type: Report from Study
  Country: US (occurrence: US)
  Receive Date: 20190506
  Receipt Date: 20190520
  Transmission Date: 20190711
  Serious: Yes (Hospitalization, Disabling, Other)
  Sender: FDA-Public Use
  Company Number: US-CELGENEUS-USA-20190500578

PATIENT
  Age: 49 Year
  Sex: Male
  Weight: 77.7 kg

DRUGS (7)
  1. CIPROFLOXACIN. [Concomitant]
     Active Substance: CIPROFLOXACIN
     Indication: PRODUCT USED FOR UNKNOWN INDICATION
     Route: 065
  2. ABRAXANE [Suspect]
     Active Substance: PACLITAXEL
     Dosage: 156 MILLIGRAM
     Route: 041
     Dates: start: 20190506
  3. GEMCITABINE [Suspect]
     Active Substance: GEMCITABINE\GEMCITABINE HYDROCHLORIDE
     Indication: CHOLANGIOCARCINOMA
     Dosage: 1664 MILLIGRAM
     Route: 041
     Dates: start: 20190325, end: 20190415
  4. GEMCITABINE [Suspect]
     Active Substance: GEMCITABINE\GEMCITABINE HYDROCHLORIDE
     Dosage: 1248 MILLIGRAM
     Route: 041
     Dates: start: 20190506
  5. CISPLATIN. [Suspect]
     Active Substance: CISPLATIN
     Dosage: 42 MILLIGRAM
     Route: 041
     Dates: start: 20190506
  6. CISPLATIN. [Suspect]
     Active Substance: CISPLATIN
     Indication: CHOLANGIOCARCINOMA
     Dosage: 52 MILLIGRAM
     Route: 041
     Dates: start: 20190325, end: 20190415
  7. ABRAXANE [Suspect]
     Active Substance: PACLITAXEL
     Indication: CHOLANGIOCARCINOMA
     Dosage: 208 MILLIGRAM
     Route: 041
     Dates: start: 20190325, end: 20190415

REACTIONS (1)
  - Abdominal pain [Not Recovered/Not Resolved]

NARRATIVE: CASE EVENT DATE: 20190429
